FAERS Safety Report 23795605 (Version 1)
Quarter: 2024Q2

REPORT INFORMATION
  Report Type: Spontaneous
  Country: US (occurrence: US)
  Receive Date: 20240429
  Receipt Date: 20240429
  Transmission Date: 20240715
  Serious: Yes (Other)
  Sender: FDA-Public Use
  Company Number: US-BAYER-2024A059851

PATIENT
  Age: 71 Year
  Sex: Female

DRUGS (1)
  1. KERENDIA [Suspect]
     Active Substance: FINERENONE
     Dosage: UNK
     Dates: start: 2024

REACTIONS (2)
  - Cardiac murmur [None]
  - Hypotension [None]

NARRATIVE: CASE EVENT DATE: 20240101
